FAERS Safety Report 10431624 (Version 4)
Quarter: 2014Q4

REPORT INFORMATION
  Report Type: Spontaneous
  Country: JP (occurrence: None)
  Receive Date: 20140903
  Receipt Date: 20141104
  Transmission Date: 20150528
  Serious: Yes (Death, Life-Threatening, Other)
  Sender: FDA-Public Use
  Company Number: 2014MPI01069

PATIENT
  Age: 63 Year
  Sex: Female
  Weight: 50 kg

DRUGS (4)
  1. GENINAX (GARENOXACIN MESILATE) [Concomitant]
  2. ANTIHISTAMINES [Concomitant]
     Active Substance: ANTIHISTAMINES NOS
  3. ADCETRIS [Suspect]
     Active Substance: BRENTUXIMAB VEDOTIN
     Indication: ANAPLASTIC LARGE-CELL LYMPHOMA
     Dosage: Q21D, IV DRIP
     Route: 041
     Dates: start: 20140610
  4. BAKTAR (SULFAMETHOXAZOLE, TRIMETHOPRIM) TABLET [Concomitant]
     Active Substance: SULFAMETHOXAZOLE\TRIMETHOPRIM

REACTIONS (6)
  - Infusion related reaction [None]
  - Oedema peripheral [None]
  - Pyrexia [None]
  - Multi-organ failure [None]
  - Peripheral sensory neuropathy [None]
  - Flank pain [None]

NARRATIVE: CASE EVENT DATE: 20140610
